FAERS Safety Report 12496672 (Version 4)
Quarter: 2016Q3

REPORT INFORMATION
  Report Type: Spontaneous
  Country: US (occurrence: US)
  Receive Date: 20160624
  Receipt Date: 20160811
  Transmission Date: 20161109
  Serious: No
  Sender: FDA-Public Use
  Company Number: US-ACTELION-A-NJ2016-137563

PATIENT
  Age: 71 Year
  Sex: Male

DRUGS (7)
  1. UPTRAVI [Suspect]
     Active Substance: SELEXIPAG
     Dosage: 800 MCG, BID
     Route: 048
  2. OPSUMIT [Suspect]
     Active Substance: MACITENTAN
     Indication: PULMONARY ARTERIAL HYPERTENSION
     Dosage: 10 MG, UNK
     Route: 048
     Dates: start: 20150604
  3. UPTRAVI [Suspect]
     Active Substance: SELEXIPAG
     Dosage: 600 UNK, UNK
     Route: 048
  4. UPTRAVI [Suspect]
     Active Substance: SELEXIPAG
     Indication: PULMONARY ARTERIAL HYPERTENSION
     Dosage: 1000 MCG, BID
     Route: 048
     Dates: start: 20160426, end: 20160728
  5. UPTRAVI [Suspect]
     Active Substance: SELEXIPAG
     Dosage: 200 MCG, BID
     Route: 048
  6. ADCIRCA [Concomitant]
     Active Substance: TADALAFIL
  7. AMLODIPINE [Concomitant]
     Active Substance: AMLODIPINE BESYLATE

REACTIONS (12)
  - Pain in extremity [Unknown]
  - Conjunctival hyperaemia [Recovering/Resolving]
  - Pain [Unknown]
  - Erythema [Unknown]
  - Gout [Unknown]
  - Myalgia [Recovering/Resolving]
  - Dyspnoea [Unknown]
  - Dizziness [Recovering/Resolving]
  - Vision blurred [Unknown]
  - Arthralgia [Unknown]
  - Flushing [Recovering/Resolving]
  - Balance disorder [Unknown]
